FAERS Safety Report 6585523-1 (Version None)
Quarter: 2010Q1

REPORT INFORMATION
  Report Type: 
  Country: None (occurrence: None)
  Receive Date: 20100201
  Receipt Date: 20090813
  Transmission Date: 20100710
  Serious: Yes (Other)
  Sender: FDA-Public Use
  Company Number: 8050446

PATIENT
  Sex: Female
  Weight: 70 kg

DRUGS (13)
  1. KEPPRA [Suspect]
     Indication: MYOCLONIC EPILEPSY
     Dosage: (10 MG BID ORAL), (5 ML BID ORAL), (14 ML BID ORAL), 97.5 ML BID ORAL)
     Route: 048
     Dates: start: 20070101, end: 20090401
  2. KEPPRA [Suspect]
     Indication: MYOCLONIC EPILEPSY
     Dosage: (10 MG BID ORAL), (5 ML BID ORAL), (14 ML BID ORAL), 97.5 ML BID ORAL)
     Route: 048
     Dates: start: 20090401, end: 20090701
  3. KEPPRA [Suspect]
     Indication: MYOCLONIC EPILEPSY
     Dosage: (10 MG BID ORAL), (5 ML BID ORAL), (14 ML BID ORAL), 97.5 ML BID ORAL)
     Route: 048
     Dates: start: 20090811, end: 20090812
  4. KEPPRA [Suspect]
     Indication: MYOCLONIC EPILEPSY
     Dosage: (10 MG BID ORAL), (5 ML BID ORAL), (14 ML BID ORAL), 97.5 ML BID ORAL)
     Route: 048
     Dates: start: 20090812
  5. LACOSAMIDE [Suspect]
     Indication: MYOCLONIC EPILEPSY
     Dosage: (75 MG BID ORAL), (150 MG BID ORAL), (75 MG BID ORAL), (50 MG BID ORAL)
     Route: 048
     Dates: start: 20090701, end: 20090801
  6. LACOSAMIDE [Suspect]
     Indication: MYOCLONIC EPILEPSY
     Dosage: (75 MG BID ORAL), (150 MG BID ORAL), (75 MG BID ORAL), (50 MG BID ORAL)
     Route: 048
     Dates: start: 20090801, end: 20090811
  7. LACOSAMIDE [Suspect]
     Indication: MYOCLONIC EPILEPSY
     Dosage: (75 MG BID ORAL), (150 MG BID ORAL), (75 MG BID ORAL), (50 MG BID ORAL)
     Route: 048
     Dates: start: 20090811, end: 20090812
  8. LACOSAMIDE [Suspect]
     Indication: MYOCLONIC EPILEPSY
     Dosage: (75 MG BID ORAL), (150 MG BID ORAL), (75 MG BID ORAL), (50 MG BID ORAL)
     Route: 048
     Dates: start: 20090812
  9. DEPAKENE [Concomitant]
  10. LASIX [Concomitant]
  11. LEVOTHYROXINE [Concomitant]
  12. DIGOXIN [Concomitant]
  13. METOPROLOL [Concomitant]

REACTIONS (7)
  - CONSTIPATION [None]
  - DIARRHOEA [None]
  - HYPERVIGILANCE [None]
  - MYOCLONIC EPILEPSY [None]
  - OEDEMA PERIPHERAL [None]
  - SOMNOLENCE [None]
  - VOMITING [None]
